FAERS Safety Report 9816332 (Version 2)
Quarter: 2014Q3

REPORT INFORMATION
  Report Type: Report from Study
  Country: US (occurrence: US)
  Receive Date: 20140114
  Receipt Date: 20140731
  Transmission Date: 20150326
  Serious: Yes (Hospitalization, Other)
  Sender: FDA-Public Use
  Company Number: US-US-EMD SERONO, INC.-7261594

PATIENT
  Age: 62 Year
  Sex: Male

DRUGS (3)
  1. LISINOPRIL. [Concomitant]
     Active Substance: LISINOPRIL
     Indication: BLOOD PRESSURE
  2. REBIF [Suspect]
     Active Substance: INTERFERON BETA-1A
     Indication: MULTIPLE SCLEROSIS
     Route: 058
     Dates: start: 20120516
  3. OXYGEN. [Concomitant]
     Active Substance: OXYGEN
     Indication: DYSPNOEA

REACTIONS (6)
  - Embolism arterial [Recovering/Resolving]
  - Tremor [Recovered/Resolved]
  - Muscle tightness [Recovered/Resolved]
  - Diabetes mellitus [Recovering/Resolving]
  - Myocardial infarction [Recovering/Resolving]
  - Paraesthesia [Recovered/Resolved]

NARRATIVE: CASE EVENT DATE: 201309
